FAERS Safety Report 23516651 (Version 1)
Quarter: 2024Q1

REPORT INFORMATION
  Report Type: Spontaneous
  Country: US (occurrence: None)
  Receive Date: 20240212
  Receipt Date: 20240212
  Transmission Date: 20240410
  Serious: Yes (Other)
  Sender: FDA-Public Use
  Company Number: None

PATIENT
  Age: 64 Year
  Sex: Male
  Weight: 71 kg

DRUGS (1)
  1. AZITHROMYCIN [Suspect]
     Active Substance: AZITHROMYCIN
     Indication: Pneumonia
     Dosage: FREQUENCY : DAILY;?
     Route: 042
     Dates: start: 20240208, end: 20240209

REACTIONS (5)
  - Abdominal pain [None]
  - Infusion related reaction [None]
  - Nausea [None]
  - Urinary incontinence [None]
  - Dizziness [None]

NARRATIVE: CASE EVENT DATE: 20240209
